FAERS Safety Report 4689887-5 (Version None)
Quarter: 2005Q2

REPORT INFORMATION
  Report Type: 
  Country: None (occurrence: None)
  Receive Date: 20050608
  Receipt Date: 20050328
  Transmission Date: 20051028
  Serious: No
  Sender: FDA-Public Use
  Company Number: 2005-BP-05163BP

PATIENT
  Age: 72 Year
  Sex: Male

DRUGS (8)
  1. SPIRIVA [Suspect]
     Indication: CHRONIC OBSTRUCTIVE PULMONARY DISEASE
     Dosage: 18 MCG (18 MCG, QD), IH
     Route: 055
     Dates: start: 20050304
  2. ACOURPRIO [Concomitant]
  3. MAGNESIUM (MAGNESIUM) [Concomitant]
  4. IRON (IRON) [Concomitant]
  5. QUINAPRIL HCL [Concomitant]
  6. MAGNESIUM OXIDE (MAGNESIUM OXIDE) [Concomitant]
  7. FERROUS SULFATE TAB [Concomitant]
  8. SPIRIVA [Suspect]
     Indication: EMPHYSEMA

REACTIONS (1)
  - LUNG NEOPLASM [None]
